FAERS Safety Report 6709993-0 (Version None)
Quarter: 2010Q2

REPORT INFORMATION
  Report Type: 
  Country: None (occurrence: None)
  Receive Date: 20100430
  Receipt Date: 20100429
  Transmission Date: 20101027
  Serious: Yes (Other)
  Sender: FDA-Public Use
  Company Number: 2009NI0253FU2

PATIENT
  Age: 45 Year
  Sex: Female
  Weight: 68.0396 kg

DRUGS (3)
  1. NITROLINGUAL PUMPSPRAY [Suspect]
     Indication: CHEST PAIN
     Dosage: 1 SPRAY AS NEEDED
  2. NITROLINGUAL PUMPSPRAY [Suspect]
     Indication: OESOPHAGEAL SPASM
     Dosage: 1 SPRAY AS NEEDED
  3. CLONIDINE [Concomitant]

REACTIONS (6)
  - CHEST PAIN [None]
  - COUGH [None]
  - DEVICE LEAKAGE [None]
  - DRUG INEFFECTIVE [None]
  - PRODUCT QUALITY ISSUE [None]
  - PRODUCT TASTE ABNORMAL [None]
